FAERS Safety Report 7267494-8 (Version None)
Quarter: 2011Q1

REPORT INFORMATION
  Report Type: 
  Country: None (occurrence: None)
  Receive Date: 20110201
  Receipt Date: 20110124
  Transmission Date: 20110831
  Serious: Yes (Hospitalization)
  Sender: FDA-Public Use
  Company Number: US-JNJFOC-20110106845

PATIENT
  Sex: Female
  Weight: 46.72 kg

DRUGS (4)
  1. CONCERTA [Suspect]
     Indication: ATTENTION DEFICIT/HYPERACTIVITY DISORDER
     Route: 048
  2. DEPAKOTE [Concomitant]
     Indication: CONVULSION
     Route: 048
  3. CONCERTA [Suspect]
     Route: 048
  4. CLONIDINE [Concomitant]
     Route: 048

REACTIONS (3)
  - HOSPITALISATION [None]
  - MALAISE [None]
  - DRUG ADMINISTRATION ERROR [None]
